FAERS Safety Report 25684840 (Version 1)
Quarter: 2025Q3

REPORT INFORMATION
  Report Type: Spontaneous
  Country: US (occurrence: None)
  Receive Date: 20250814
  Receipt Date: 20250814
  Transmission Date: 20251021
  Serious: Yes (Other)
  Sender: FDA-CTU
  Company Number: None

PATIENT
  Age: 76 Year
  Sex: Male

DRUGS (1)
  1. BOSENTAN [Suspect]
     Active Substance: BOSENTAN
     Indication: Pulmonary arterial hypertension
     Dosage: 125MG BID ORAL ?
     Route: 048
     Dates: start: 20210903

REACTIONS (4)
  - Cholelithiasis [None]
  - Nephrolithiasis [None]
  - Hepatic steatosis [None]
  - Cholecystitis acute [None]

NARRATIVE: CASE EVENT DATE: 20250813
